FAERS Safety Report 8573562-0 (Version None)
Quarter: 2012Q3

REPORT INFORMATION
  Report Type: 
  Country: None (occurrence: None)
  Receive Date: 20120806
  Receipt Date: 20120731
  Transmission Date: 20120928
  Serious: Yes (Other)
  Sender: FDA-Public Use
  Company Number: GR-ABBOTT-11P-066-0844184-00

PATIENT
  Sex: Male
  Weight: 55 kg

DRUGS (7)
  1. CALCIUM CARBONATE [Concomitant]
     Indication: HYPERPHOSPHATAEMIA
     Route: 048
     Dates: start: 20100617
  2. AMLODIPINE [Concomitant]
     Dosage: 5 OR 10 MG/DAILY
     Route: 048
     Dates: start: 20070704, end: 20100617
  3. EPOEITIN-ALPHA [Concomitant]
     Indication: ANAEMIA
     Route: 058
     Dates: start: 20090420
  4. SEVELAMER [Concomitant]
     Indication: IRON DEFICIENCY ANAEMIA
     Route: 048
  5. ZEMPLAR [Suspect]
     Indication: HYPERPARATHYROIDISM SECONDARY
     Route: 048
     Dates: start: 20100210
  6. ATORVASTATIN [Concomitant]
     Indication: DYSLIPIDAEMIA
     Route: 048
     Dates: start: 20070706, end: 20110204
  7. AMLODIPINE [Concomitant]
     Indication: HYPERTENSION
     Route: 048
     Dates: start: 20070704

REACTIONS (2)
  - DYSPHAGIA [None]
  - BONE NEOPLASM MALIGNANT [None]
